FAERS Safety Report 4875132-4 (Version None)
Quarter: 2006Q1

REPORT INFORMATION
  Report Type: 
  Country: None (occurrence: None)
  Receive Date: 20060104
  Receipt Date: 20051219
  Transmission Date: 20060701
  Serious: Yes (Other)
  Sender: FDA-Public Use
  Company Number: 2005002400

PATIENT
  Sex: Female

DRUGS (2)
  1. TARCEVA [Suspect]
     Indication: METASTATIC RENAL CELL CARCINOMA
     Dosage: ORAL
     Route: 048
     Dates: start: 20050615
  2. BEVACIZUMAB (INJECTION FOR INFUSION) [Suspect]
     Indication: METASTATIC RENAL CELL CARCINOMA
     Dosage: INTRAVENOUS
     Route: 042
     Dates: start: 20050615

REACTIONS (2)
  - ANAEMIA [None]
  - URINARY TRACT INFECTION [None]
